FAERS Safety Report 16394110 (Version 1)
Quarter: 2019Q2

REPORT INFORMATION
  Report Type: Spontaneous
  Country: CN (occurrence: CN)
  Receive Date: 20190605
  Receipt Date: 20190605
  Transmission Date: 20190711
  Serious: Yes (Other)
  Sender: FDA-Public Use
  Company Number: CN-009507513-1905CHN013192

PATIENT
  Age: 60 Year
  Sex: Male
  Weight: 63 kg

DRUGS (3)
  1. LIPUSU [Suspect]
     Active Substance: PACLITAXEL
     Indication: CHEMOTHERAPY
     Dosage: 270 MG, QD, IVGTT
     Route: 041
     Dates: start: 20190502, end: 20190502
  2. CARBOPLATIN. [Suspect]
     Active Substance: CARBOPLATIN
     Indication: CHEMOTHERAPY
     Dosage: 0.7 G, QD, IVGTT
     Route: 041
     Dates: start: 20190502, end: 20190502
  3. KEYTRUDA [Suspect]
     Active Substance: PEMBROLIZUMAB
     Indication: IMMUNOCHEMOTHERAPY
     Dosage: 200 MG, QD, IVGTT, DL
     Route: 041
     Dates: start: 20190502, end: 20190502

REACTIONS (3)
  - Merycism [Recovering/Resolving]
  - Nausea [Recovering/Resolving]
  - Bone marrow failure [Recovering/Resolving]

NARRATIVE: CASE EVENT DATE: 201905
